FAERS Safety Report 10104473 (Version 2)
Quarter: 2014Q4

REPORT INFORMATION
  Report Type: Other
  Country: US (occurrence: US)
  Receive Date: 20140424
  Receipt Date: 20141023
  Transmission Date: 20150528
  Serious: Yes (Other)
  Sender: FDA-Public Use
  Company Number: US-GSKPPD-2014GSK001349

PATIENT
  Age: 60 Year
  Sex: Male
  Weight: 98.97 kg

DRUGS (4)
  1. ASPIRIN EC [Concomitant]
     Active Substance: ASPIRIN
  2. ENALAPRIL [Concomitant]
     Active Substance: ENALAPRIL
  3. AVANDIA [Suspect]
     Active Substance: ROSIGLITAZONE MALEATE
     Indication: DIABETES MELLITUS
     Route: 048
     Dates: start: 20010731, end: 20080215
  4. METOPROLOL [Concomitant]
     Active Substance: METOPROLOL

REACTIONS (1)
  - Angina unstable [Unknown]

NARRATIVE: CASE EVENT DATE: 20071001
